FAERS Safety Report 15461416 (Version 2)
Quarter: 2018Q4

REPORT INFORMATION
  Report Type: Spontaneous
  Country: FR (occurrence: FR)
  Receive Date: 20181003
  Receipt Date: 20181114
  Transmission Date: 20190204
  Serious: Yes (Other)
  Sender: FDA-Public Use
  Company Number: PHHY2018FR114118

PATIENT
  Age: 20 Year
  Sex: Male

DRUGS (1)
  1. LAMISIL [Suspect]
     Active Substance: TERBINAFINE HYDROCHLORIDE
     Indication: SYSTEMIC MYCOSIS
     Dosage: 1 DF, QD (FOR 7 DAYS MONTHLY)
     Route: 048
     Dates: start: 2018, end: 201808

REACTIONS (3)
  - Enterocolitis haemorrhagic [Unknown]
  - Haematochezia [Not Recovered/Not Resolved]
  - Diarrhoea [Not Recovered/Not Resolved]

NARRATIVE: CASE EVENT DATE: 201807
